FAERS Safety Report 16390649 (Version 2)
Quarter: 2019Q4

REPORT INFORMATION
  Report Type: Report from Study
  Country: US (occurrence: US)
  Receive Date: 20190604
  Receipt Date: 20191126
  Transmission Date: 20200122
  Serious: Yes (Hospitalization, Other)
  Sender: FDA-Public Use
  Company Number: US-ACTELION-A-NJ2019-190810

PATIENT
  Age: 31 Year
  Sex: Female
  Weight: 81.63 kg

DRUGS (6)
  1. TADALAFIL. [Concomitant]
     Active Substance: TADALAFIL
  2. VELETRI [Suspect]
     Active Substance: EPOPROSTENOL
     Dosage: 35.59 NG/KG, PER MIN
     Route: 042
  3. VELETRI [Suspect]
     Active Substance: EPOPROSTENOL
     Indication: PULMONARY ARTERIAL HYPERTENSION
     Dosage: 33.59 NG/KG, PER MIN
     Route: 042
  4. VELETRI [Suspect]
     Active Substance: EPOPROSTENOL
     Dosage: 42.71 NG/KG, PER MIN
     Route: 042
  5. OPSUMIT [Suspect]
     Active Substance: MACITENTAN
     Indication: PULMONARY ARTERIAL HYPERTENSION
     Dosage: 10 MG, QD
     Route: 048
  6. ELIQUIS [Concomitant]
     Active Substance: APIXABAN

REACTIONS (10)
  - Fluid overload [Unknown]
  - Palpitations [Unknown]
  - Diarrhoea [Unknown]
  - Thrombosis in device [Unknown]
  - Dyspnoea exertional [Unknown]
  - Catheter management [Unknown]
  - Weight decreased [Unknown]
  - Device dislocation [Unknown]
  - Bronchitis [Unknown]
  - Cough [Not Recovered/Not Resolved]

NARRATIVE: CASE EVENT DATE: 20190519
